FAERS Safety Report 22268452 (Version 1)
Quarter: 2023Q2

REPORT INFORMATION
  Report Type: Spontaneous
  Country: US (occurrence: US)
  Receive Date: 20230430
  Receipt Date: 20230430
  Transmission Date: 20230722
  Serious: No
  Sender: FDA-Public Use
  Company Number: US-SANOFI-01590167

PATIENT
  Age: 86 Year
  Sex: Female

DRUGS (1)
  1. DUPIXENT [Suspect]
     Active Substance: DUPILUMAB
     Indication: Asthma
     Dosage: UNK UNK, BIM
     Route: 065
     Dates: start: 20230214, end: 20230425

REACTIONS (10)
  - Malaise [Unknown]
  - Condition aggravated [Unknown]
  - Decreased appetite [Unknown]
  - Condition aggravated [Unknown]
  - Feeling cold [Unknown]
  - Condition aggravated [Unknown]
  - Asthenia [Unknown]
  - Condition aggravated [Unknown]
  - Arthralgia [Unknown]
  - Drug ineffective [Unknown]

NARRATIVE: CASE EVENT DATE: 20230101
